FAERS Safety Report 25838529 (Version 1)
Quarter: 2025Q3

REPORT INFORMATION
  Report Type: Spontaneous
  Country: JP (occurrence: JP)
  Receive Date: 20250923
  Receipt Date: 20250923
  Transmission Date: 20251021
  Serious: Yes (Other)
  Sender: NOVARTIS
  Company Number: JP-002147023-NVSJ2025JP009331

PATIENT
  Age: 83 Year
  Sex: Male

DRUGS (7)
  1. TABRECTA [Suspect]
     Active Substance: CAPMATINIB
     Indication: Non-small cell lung cancer
     Dosage: 400 MG, BID
     Route: 048
  2. TABRECTA [Suspect]
     Active Substance: CAPMATINIB
     Indication: MET exon 14 skipping mutation positive
     Route: 048
  3. TABRECTA [Suspect]
     Active Substance: CAPMATINIB
     Route: 048
  4. TABRECTA [Suspect]
     Active Substance: CAPMATINIB
     Route: 048
  5. TABRECTA [Suspect]
     Active Substance: CAPMATINIB
     Route: 048
  6. AZOSEMIDE [Concomitant]
     Active Substance: AZOSEMIDE
     Indication: Product used for unknown indication
     Route: 065
  7. FUROSEMIDE [Concomitant]
     Active Substance: FUROSEMIDE
     Indication: Product used for unknown indication
     Route: 065

REACTIONS (5)
  - Pericardial effusion [Unknown]
  - Dizziness [Unknown]
  - Malaise [Unknown]
  - Blood creatinine increased [Unknown]
  - Oedema [Unknown]
